FAERS Safety Report 16315644 (Version 2)
Quarter: 2022Q1

REPORT INFORMATION
  Report Type: Spontaneous
  Country: CA (occurrence: CA)
  Receive Date: 20190515
  Receipt Date: 20220316
  Transmission Date: 20220423
  Serious: Yes (Other)
  Sender: FDA-Public Use
  Company Number: CA-PURDUE PHARMA-CAN-2019-0010047

PATIENT
  Age: 23 Year
  Sex: Male

DRUGS (3)
  1. HYDROMORPHONE HYDROCHLORIDE [Suspect]
     Active Substance: HYDROMORPHONE HYDROCHLORIDE
     Indication: Drug abuse
     Dosage: UNK
     Route: 065
  2. FENTANYL CITRATE [Suspect]
     Active Substance: FENTANYL CITRATE
     Indication: Drug abuse
     Dosage: UNK
     Route: 042
  3. ALCOHOL [Suspect]
     Active Substance: ALCOHOL
     Indication: Alcohol abuse
     Dosage: UNK
     Route: 048

REACTIONS (5)
  - Drug dependence [Unknown]
  - Drug abuse [Unknown]
  - Alcohol abuse [Unknown]
  - Hallucination [Unknown]
  - Tremor [Unknown]
